FAERS Safety Report 8487922-X (Version None)
Quarter: 2012Q3

REPORT INFORMATION
  Report Type: 
  Country: None (occurrence: None)
  Receive Date: 20120705
  Receipt Date: 20120626
  Transmission Date: 20120928
  Serious: Yes (Other)
  Sender: FDA-Public Use
  Company Number: NL-PFIZER INC-2012155398

PATIENT
  Age: 66 Year
  Sex: Female

DRUGS (1)
  1. XALATAN [Suspect]
     Indication: GLAUCOMA
     Dosage: UNK
     Dates: start: 20090101

REACTIONS (5)
  - EYE PAIN [None]
  - IMPAIRED HEALING [None]
  - BRONCHITIS [None]
  - NASOPHARYNGITIS [None]
  - OROPHARYNGEAL PAIN [None]
